FAERS Safety Report 12975681 (Version 8)
Quarter: 2025Q2

REPORT INFORMATION
  Report Type: Spontaneous
  Country: BE (occurrence: BE)
  Receive Date: 20161125
  Receipt Date: 20250408
  Transmission Date: 20250717
  Serious: Yes (Hospitalization, Other)
  Sender: TAKEDA
  Company Number: BE-TAKEDA-2016TUS021324

PATIENT
  Age: 22 Year
  Sex: Male

DRUGS (3)
  1. ENTYVIO [Suspect]
     Active Substance: VEDOLIZUMAB
     Indication: Crohn^s disease
  2. ENTYVIO [Suspect]
     Active Substance: VEDOLIZUMAB
     Dosage: 300 MILLIGRAM, Q4WEEKS
  3. ENTYVIO [Suspect]
     Active Substance: VEDOLIZUMAB

REACTIONS (2)
  - Gastrointestinal obstruction [Recovering/Resolving]
  - Therapeutic reaction time decreased [Unknown]

NARRATIVE: CASE EVENT DATE: 20161001
